FAERS Safety Report 6201071-2 (Version None)
Quarter: 2009Q2

REPORT INFORMATION
  Report Type: 
  Country: None (occurrence: None)
  Receive Date: 20090526
  Receipt Date: 20090423
  Transmission Date: 20091009
  Serious: No
  Sender: FDA-Public Use
  Company Number: US-BAYER-200919066NA

PATIENT
  Sex: Female

DRUGS (1)
  1. CIPRO [Suspect]
     Indication: URINARY TRACT INFECTION
     Dosage: 5 DAY COURSE
     Dates: start: 20090101

REACTIONS (4)
  - ALOPECIA [None]
  - PAIN [None]
  - PARAESTHESIA [None]
  - RASH [None]
